FAERS Safety Report 7746052-2 (Version None)
Quarter: 2011Q3

REPORT INFORMATION
  Report Type: 
  Country: None (occurrence: None)
  Receive Date: 20110908
  Receipt Date: 20110825
  Transmission Date: 20111222
  Serious: Yes (Hospitalization)
  Sender: FDA-Public Use
  Company Number: TCI2011A04506

PATIENT
  Age: 59 Year
  Sex: Male

DRUGS (9)
  1. JANUVIA [Concomitant]
  2. AMLODIPINE BESYLATE [Concomitant]
  3. PREMINENT (HYDROCHLOROTHIAZIDE, LOSARTAN POTASSIUM) [Concomitant]
  4. BLOPRESS (CANDESARTAN CILEXETIL) [Concomitant]
  5. ACTOS [Suspect]
     Indication: DIABETES MELLITUS
     Dosage: 15 MG(15 MG, 1 IN 1 D)
     Route: 048
     Dates: start: 20051014, end: 20110812
  6. GLYBURIDE [Concomitant]
  7. BUFFERIN [Concomitant]
  8. ARTIST (CARVEDILOL) [Concomitant]
  9. ENALAPRIL MALEATE [Concomitant]

REACTIONS (2)
  - BLADDER TRANSITIONAL CELL CARCINOMA [None]
  - ALBUMINURIA [None]
